FAERS Safety Report 5815289-1 (Version None)
Quarter: 2008Q3

REPORT INFORMATION
  Report Type: 
  Country: None (occurrence: None)
  Receive Date: 20080718
  Receipt Date: 20080706
  Transmission Date: 20090109
  Serious: Yes (Other)
  Sender: FDA-Public Use
  Company Number: US-PFIZER INC-2008057254

PATIENT

DRUGS (1)
  1. CHANTIX [Suspect]

REACTIONS (2)
  - LUNG NEOPLASM MALIGNANT [None]
  - SURGERY [None]
